FAERS Safety Report 6391466-9 (Version None)
Quarter: 2009Q4

REPORT INFORMATION
  Report Type: 
  Country: None (occurrence: None)
  Receive Date: 20091006
  Receipt Date: 20091006
  Transmission Date: 20100525
  Serious: Yes (Hospitalization)
  Sender: FDA-Public Use
  Company Number: None

PATIENT
  Age: 65 Year
  Sex: Female
  Weight: 58.514 kg

DRUGS (1)
  1. NITROFURANTOIN [Suspect]
     Indication: URINARY TRACT INFECTION
     Dosage: ONE CAPSULE 2X DAILY PO
     Route: 048
     Dates: start: 20090930, end: 20091001

REACTIONS (12)
  - ANXIETY [None]
  - BURNING SENSATION [None]
  - CHILLS [None]
  - CONFUSIONAL STATE [None]
  - DRUG TOXICITY [None]
  - FATIGUE [None]
  - HEADACHE [None]
  - MALAISE [None]
  - MENTAL IMPAIRMENT [None]
  - NAUSEA [None]
  - POLLAKIURIA [None]
  - TREMOR [None]
